FAERS Safety Report 7469975-0 (Version None)
Quarter: 2011Q2

REPORT INFORMATION
  Report Type: 
  Country: None (occurrence: None)
  Receive Date: 20110429
  Receipt Date: 20110414
  Transmission Date: 20111010
  Serious: Yes (Disabling)
  Sender: FDA-Public Use
  Company Number: 2011-0915

PATIENT
  Sex: Male
  Weight: 65 kg

DRUGS (1)
  1. DYSPORT [Suspect]
     Indication: NEUROGENIC BLADDER
     Dosage: 750 UNITS (750 UNITS,SINGLE CYCLE),INTRAMUSCULAR
     Route: 030
     Dates: start: 20110218, end: 20110218

REACTIONS (3)
  - OFF LABEL USE [None]
  - MUSCULAR WEAKNESS [None]
  - ACTIVITIES OF DAILY LIVING IMPAIRED [None]
